FAERS Safety Report 9183728 (Version 1)
Quarter: 2013Q1

REPORT INFORMATION
  Report Type: Spontaneous
  Country: US (occurrence: US)
  Receive Date: 20130322
  Receipt Date: 20130322
  Transmission Date: 20140127
  Serious: No
  Sender: FDA-Public Use
  Company Number: US-BRISTOL-MYERS SQUIBB COMPANY-16594517

PATIENT
  Age: 83 Year
  Sex: Female

DRUGS (1)
  1. ERBITUX [Suspect]
     Dosage: ABOUT 3 OR 4 WEEKS

REACTIONS (3)
  - Dry skin [Unknown]
  - Spider vein [Unknown]
  - Paraesthesia [Unknown]
